FAERS Safety Report 7124971-8 (Version None)
Quarter: 2010Q4

REPORT INFORMATION
  Report Type: 
  Country: None (occurrence: None)
  Receive Date: 20101123
  Receipt Date: 20101123
  Transmission Date: 20110411
  Serious: No
  Sender: FDA-Public Use
  Company Number: None

PATIENT
  Age: 35 Year
  Sex: Female
  Weight: 48.5349 kg

DRUGS (4)
  1. AFRIN [Suspect]
     Indication: NASAL CONGESTION
     Dosage: 3 SPRAYS EVERY 10 HOURS NASAL
     Route: 045
     Dates: start: 20101112, end: 20101122
  2. PRENEXIA -PRE-NATAL VITAMIN- [Concomitant]
  3. CLARITIN-D [Concomitant]
  4. SUDAFED 12 HOUR [Concomitant]

REACTIONS (2)
  - AGEUSIA [None]
  - ANOSMIA [None]
